FAERS Safety Report 9373867 (Version 1)
Quarter: 2013Q2

REPORT INFORMATION
  Report Type: Spontaneous
  Country: ES (occurrence: ES)
  Receive Date: 20130628
  Receipt Date: 20130628
  Transmission Date: 20140414
  Serious: Yes (Death, Hospitalization)
  Sender: FDA-Public Use
  Company Number: ES-ROCHE-1242319

PATIENT
  Age: 88 Year
  Sex: Female

DRUGS (1)
  1. LUCENTIS [Suspect]
     Indication: RETINAL VEIN OCCLUSION
     Dosage: 10MG/ML
     Route: 050
     Dates: end: 20121203

REACTIONS (4)
  - Death [Fatal]
  - Deafness [Unknown]
  - Arthritis [Unknown]
  - Hypertension [Unknown]
